FAERS Safety Report 4347358-X (Version None)
Quarter: 2004Q2

REPORT INFORMATION
  Report Type: 
  Country: None (occurrence: None)
  Receive Date: 20040422
  Receipt Date: 20040331
  Transmission Date: 20050107
  Serious: Yes (Death)
  Sender: FDA-Public Use
  Company Number: FR_040403838

PATIENT
  Age: 30 Year
  Sex: Female

DRUGS (3)
  1. ZYPREXA [Suspect]
     Dosage: 20 MG/1 DAY
  2. ZYPREXA [Suspect]
     Dosage: 10 MG/1 OTHER
     Dates: start: 20040323, end: 20040323
  3. CLOZAPINE [Concomitant]

REACTIONS (5)
  - HEAD INJURY [None]
  - PNEUMONIA ASPIRATION [None]
  - PULMONARY OEDEMA [None]
  - REFUSAL OF TREATMENT BY PATIENT [None]
  - SUICIDE ATTEMPT [None]
